FAERS Safety Report 8954185 (Version 1)
Quarter: 2012Q4

REPORT INFORMATION
  Report Type: 
  Country: US (occurrence: US)
  Receive Date: 20121207
  Receipt Date: 20121207
  Transmission Date: 20130627
  Serious: No
  Sender: FDA-Public Use
  Company Number: US-009507513-1212USA001244

PATIENT
  Age: 30 Year
  Sex: Female
  Weight: 118.82 kg

DRUGS (1)
  1. NEXPLANON [Suspect]
     Indication: CONTRACEPTION
     Dosage: 1 Rod up to 3 years
     Dates: start: 20121130

REACTIONS (4)
  - Fatigue [Unknown]
  - Mood swings [Unknown]
  - Pollakiuria [Unknown]
  - Implant site pain [Unknown]
